FAERS Safety Report 8397518-6 (Version None)
Quarter: 2012Q2

REPORT INFORMATION
  Report Type: 
  Country: None (occurrence: None)
  Receive Date: 20120529
  Receipt Date: 20120529
  Transmission Date: 20120825
  Serious: Yes (Hospitalization)
  Sender: FDA-Public Use
  Company Number: None

PATIENT
  Sex: Female
  Weight: 93.5 kg

DRUGS (6)
  1. ALLOPURINOL [Suspect]
     Dosage: 300 MG
  2. METHOTREXATE [Suspect]
     Dosage: 15 MG
  3. METHYLPREDNISOLONE [Suspect]
     Dosage: 3696 MG
  4. PEG-L-ASPARAGINASE (K-H) [Suspect]
     Dosage: 5500 UNIT
  5. DAUNORUBICIN HCL [Suspect]
     Dosage: 165 MG
  6. VINCRISTINE SULFATE [Suspect]
     Dosage: 6 MG

REACTIONS (1)
  - BLOOD CHOLESTEROL INCREASED [None]
